FAERS Safety Report 5050271-6 (Version None)
Quarter: 2006Q3

REPORT INFORMATION
  Report Type: 
  Country: None (occurrence: None)
  Receive Date: 20060713
  Receipt Date: 20060630
  Transmission Date: 20061208
  Serious: Yes (Hospitalization)
  Sender: FDA-Public Use
  Company Number: US-AMGEN-STX184957

PATIENT
  Sex: Female

DRUGS (1)
  1. ENBREL [Suspect]
     Indication: RHEUMATOID ARTHRITIS
     Route: 058
     Dates: start: 20050401

REACTIONS (4)
  - KNEE ARTHROPLASTY [None]
  - KNEE OPERATION [None]
  - PATELLA FRACTURE [None]
  - POST PROCEDURAL COMPLICATION [None]
